FAERS Safety Report 8003421-3 (Version None)
Quarter: 2011Q4

REPORT INFORMATION
  Report Type: 
  Country: None (occurrence: None)
  Receive Date: 20111222
  Receipt Date: 20111011
  Transmission Date: 20120403
  Serious: No
  Sender: FDA-Public Use
  Company Number: US-BAYER-2011-100112

PATIENT
  Age: 53 Year
  Sex: Female
  Weight: 68 kg

DRUGS (1)
  1. ALEVE-D SINUS + COLD [Suspect]
     Indication: HEADACHE
     Dosage: 1 DF, ONCE
     Dates: start: 20111011, end: 20111011

REACTIONS (1)
  - HEADACHE [None]
